FAERS Safety Report 15809058 (Version 5)
Quarter: 2020Q1

REPORT INFORMATION
  Report Type: Spontaneous
  Country: DE (occurrence: DE)
  Receive Date: 20190110
  Receipt Date: 20200108
  Transmission Date: 20200409
  Serious: Yes (Other)
  Sender: FDA-Public Use
  Company Number: DE-MYLANLABS-2019M1001791

PATIENT
  Age: 40 Year
  Sex: Female
  Weight: 77 kg

DRUGS (17)
  1. LEVOTHYROXINE. [Suspect]
     Active Substance: LEVOTHYROXINE
     Indication: AUTOIMMUNE THYROIDITIS
     Dosage: 75 MICROGRAM, QD
     Route: 048
     Dates: start: 20130310, end: 20131113
  2. METHYLDOPA. [Suspect]
     Active Substance: METHYLDOPA
     Indication: HYPERTENSION
     Dosage: 250 MILLIGRAM, Q6H
     Route: 048
     Dates: start: 20130502, end: 20131113
  3. METHYLDOPA. [Suspect]
     Active Substance: METHYLDOPA
     Dosage: PREGNANCY WEEK 7(+4) TO 35(+3)
     Route: 065
  4. RAMIPRIL. [Suspect]
     Active Substance: RAMIPRIL
     Indication: HYPERTENSION
     Dosage: 10MG, PREGNANCY WEEK 0?6(+4)
     Route: 048
     Dates: start: 20130310, end: 20130425
  5. SITAGLIPTIN [Suspect]
     Active Substance: SITAGLIPTIN
     Indication: TYPE 2 DIABETES MELLITUS
     Dosage: PREGNANCY WEEK 0 TO 6(+4)
     Route: 065
  6. FOLIC ACID. [Suspect]
     Active Substance: FOLIC ACID
     Indication: PROPHYLAXIS OF NEURAL TUBE DEFECT
     Dosage: 0.4 MILLIGRAM, QD
     Route: 048
  7. METOPROLOL. [Suspect]
     Active Substance: METOPROLOL
     Indication: HYPERTENSION
     Dosage: 47.5 MILLIGRAM, BID
     Route: 048
     Dates: start: 20130502, end: 20131113
  8. METOPROLOL. [Suspect]
     Active Substance: METOPROLOL
     Dosage: PREGNANCY WEEK 7(+4) TO 35(+3)
  9. RAMIPRIL. [Suspect]
     Active Substance: RAMIPRIL
     Dosage: 10 UNK
  10. METFORMIN [Suspect]
     Active Substance: METFORMIN HYDROCHLORIDE
     Dosage: PREGNANCY WEEK 0 TO 6(+4)
     Route: 065
  11. XELEVIA [Suspect]
     Active Substance: SITAGLIPTIN PHOSPHATE
     Indication: TYPE 2 DIABETES MELLITUS
     Dosage: 100 MILLIGRAM, QD
     Route: 048
     Dates: start: 20130310, end: 20130425
  12. METFORMIN [Suspect]
     Active Substance: METFORMIN HYDROCHLORIDE
     Indication: TYPE 2 DIABETES MELLITUS
     Dosage: PREGNANCY WEEK 0 TO 6(+4)
  13. METFORMIN [Suspect]
     Active Substance: METFORMIN HYDROCHLORIDE
     Indication: HYPERTENSION
     Dosage: 1000 MILLIGRAM, BID
     Route: 048
     Dates: start: 20130310, end: 20130425
  14. LEVOTHYROXINE. [Suspect]
     Active Substance: LEVOTHYROXINE
     Indication: TYPE 2 DIABETES MELLITUS
     Dosage: PREGNANCY WEEK 0 TO 35(+3)
     Route: 065
  15. INSULIN [Suspect]
     Active Substance: INSULIN NOS
     Indication: TYPE 2 DIABETES MELLITUS
     Dosage: PREGNANCY WEEK 0 TO 35(+3)
  16. RAMIPRIL. [Suspect]
     Active Substance: RAMIPRIL
     Dosage: 10MG, PREGNANCY WEEK 0?6(+4)
     Route: 048
  17. IODINE. [Suspect]
     Active Substance: IODINE
     Indication: PROPHYLAXIS
     Dosage: 0.4 MG, QD
     Route: 048

REACTIONS (4)
  - Polyhydramnios [Unknown]
  - Premature delivery [Unknown]
  - Maternal exposure during pregnancy [Recovered/Resolved]
  - Placental insufficiency [Unknown]

NARRATIVE: CASE EVENT DATE: 2013
